FAERS Safety Report 20883407 (Version 1)
Quarter: 2022Q2

REPORT INFORMATION
  Report Type: Spontaneous
  Country: NZ (occurrence: NZ)
  Receive Date: 20220527
  Receipt Date: 20220527
  Transmission Date: 20220720
  Serious: Yes (Other)
  Sender: FDA-Public Use
  Company Number: NZ-RISINGPHARMA-NZ-2022RISLIT00441

PATIENT
  Sex: Male

DRUGS (1)
  1. ACETAMINOPHEN [Suspect]
     Active Substance: ACETAMINOPHEN
     Indication: Patent ductus arteriosus repair
     Route: 065

REACTIONS (2)
  - Acute hepatic failure [Recovered/Resolved]
  - Product use in unapproved indication [Unknown]
